FAERS Safety Report 13741836 (Version 1)
Quarter: 2017Q3

REPORT INFORMATION
  Report Type: Spontaneous
  Country: FR (occurrence: FR)
  Receive Date: 20170711
  Receipt Date: 20170711
  Transmission Date: 20171127
  Serious: Yes (Death, Other)
  Sender: FDA-Public Use
  Company Number: FR-APOTEX-2017AP013918

PATIENT

DRUGS (25)
  1. NEORAL [Suspect]
     Active Substance: CYCLOSPORINE
     Indication: PRODUCT USED FOR UNKNOWN INDICATION
     Dosage: 80 MG, BID
     Route: 048
     Dates: start: 20131022, end: 20140602
  2. LANTUS [Suspect]
     Active Substance: INSULIN GLARGINE
     Indication: PRODUCT USED FOR UNKNOWN INDICATION
     Dosage: 22 IU, 1D
     Route: 058
     Dates: start: 20131226, end: 201404
  3. EPOETIN ALFA [Suspect]
     Active Substance: ERYTHROPOIETIN
     Indication: PRODUCT USED FOR UNKNOWN INDICATION
     Dosage: UNK
     Route: 058
     Dates: start: 20140221, end: 20140512
  4. SPIRIVA [Concomitant]
     Active Substance: TIOTROPIUM BROMIDE MONOHYDRATE
  5. DELURSAN [Concomitant]
     Active Substance: URSODIOL
  6. LEXOMIL [Concomitant]
     Active Substance: BROMAZEPAM
  7. ROVALCYTE [Concomitant]
     Active Substance: VALGANCICLOVIR HYDROCHLORIDE
     Dosage: UNK
     Dates: start: 201311, end: 20140326
  8. SOLU-MEDROL [Concomitant]
     Active Substance: METHYLPREDNISOLONE SODIUM SUCCINATE
  9. ZOLPIDEM [Suspect]
     Active Substance: ZOLPIDEM\ZOLPIDEM TARTRATE
     Indication: PRODUCT USED FOR UNKNOWN INDICATION
     Dosage: 10 MG, 1D
     Route: 048
     Dates: start: 201311, end: 20140504
  10. DESFERAL [Suspect]
     Active Substance: DEFEROXAMINE MESYLATE
     Indication: PRODUCT USED FOR UNKNOWN INDICATION
     Dosage: 600 MG, Z
     Route: 058
     Dates: start: 20140222, end: 20140504
  11. CRESTOR [Concomitant]
     Active Substance: ROSUVASTATIN CALCIUM
  12. XATRAL [Concomitant]
     Active Substance: ALFUZOSIN
  13. BACTRIM [Suspect]
     Active Substance: SULFAMETHOXAZOLE\TRIMETHOPRIM
     Indication: PRODUCT USED FOR UNKNOWN INDICATION
     Dosage: 1 DF, Z
     Route: 048
     Dates: start: 20131115, end: 20140602
  14. PAROXETINE TABLET [Suspect]
     Active Substance: PAROXETINE
     Indication: PRODUCT USED FOR UNKNOWN INDICATION
     Dosage: 20 MG, 1D
     Route: 048
     Dates: start: 20131113, end: 20140504
  15. ZELITREX FILM-COATED TABLET [Suspect]
     Active Substance: VALACYCLOVIR HYDROCHLORIDE
     Indication: PRODUCT USED FOR UNKNOWN INDICATION
     Dosage: UNK
     Route: 048
     Dates: start: 201312, end: 20140327
  16. ORACILLINE TABLET [Suspect]
     Active Substance: PENICILLIN V
     Indication: PRODUCT USED FOR UNKNOWN INDICATION
     Dosage: 1000000 IU, BID
     Route: 048
     Dates: start: 20131113, end: 20140404
  17. FINASTERIDE FILM-COATED TABLET [Suspect]
     Active Substance: FINASTERIDE
     Indication: PRODUCT USED FOR UNKNOWN INDICATION
     Dosage: 5 MG, 1D
     Route: 048
     Dates: start: 20140219, end: 20140504
  18. FOSCAVIR [Concomitant]
     Active Substance: FOSCARNET SODIUM
  19. CORTANCYL [Suspect]
     Active Substance: PREDNISONE
     Indication: PRODUCT USED FOR UNKNOWN INDICATION
     Dosage: 5 MG, 1D
     Route: 048
     Dates: start: 201301, end: 201404
  20. TAREG [Concomitant]
     Active Substance: VALSARTAN
  21. INNOVAIR [Concomitant]
     Active Substance: BECLOMETHASONE DIPROPIONATE\FORMOTEROL
  22. IMOVANE [Concomitant]
     Active Substance: ZOPICLONE
  23. SPASFON (PHLOROGLUCINOL, TRIMETHYLPHLOROGLUCINOL) [Concomitant]
     Active Substance: PHLOROGLUCINOL\1,3,5-TRIMETHOXYBENZENE
  24. DECTANCYL [Suspect]
     Active Substance: DEXAMETHASONE
     Indication: PRODUCT USED FOR UNKNOWN INDICATION
     Dosage: 1 MG, 1D
     Route: 048
     Dates: start: 20140309, end: 20140310
  25. ASPIRIN. [Concomitant]
     Active Substance: ASPIRIN

REACTIONS (13)
  - Somnolence [None]
  - Nervous system disorder [None]
  - Encephalopathy [Fatal]
  - Myoclonus [None]
  - Encephalitis [None]
  - Device related infection [None]
  - Blood pressure decreased [None]
  - Agitation [None]
  - Candida infection [None]
  - Anal abscess [None]
  - Facial paralysis [None]
  - Extrapyramidal disorder [None]
  - Parechovirus infection [None]

NARRATIVE: CASE EVENT DATE: 20140310
